FAERS Safety Report 9285592 (Version 3)
Quarter: 2013Q2

REPORT INFORMATION
  Report Type: Spontaneous
  Country: US (occurrence: None)
  Receive Date: 20130507
  Receipt Date: 20130612
  Transmission Date: 20140414
  Serious: Yes (Hospitalization, Other)
  Sender: FDA-Public Use
  Company Number: ADR-2013-00757

PATIENT
  Age: 34 Year
  Sex: Female

DRUGS (7)
  1. LIORESAL INTRATHECAL (BACLOFEN INJECTION) [Suspect]
     Indication: MUSCLE SPASTICITY
     Dosage: 300-350 MCG/DAY
  2. DILAUDID (HYDROMORPHONE) [Concomitant]
  3. STEROID INJECTIONS [Concomitant]
  4. NOVOCAIN INJECTIONS [Concomitant]
  5. DILAUDID [Concomitant]
  6. FLUOCET [Concomitant]
  7. PROMETHAZINE [Concomitant]

REACTIONS (26)
  - Overdose [None]
  - Dizziness [None]
  - Vomiting [None]
  - Amnesia [None]
  - Hypotonia [None]
  - Urinary incontinence [None]
  - Dyspnoea [None]
  - Abasia [None]
  - Headache [None]
  - Incision site complication [None]
  - Burning sensation [None]
  - Incision site oedema [None]
  - Suture related complication [None]
  - Postoperative adhesion [None]
  - Implant site effusion [None]
  - Stress [None]
  - Device dislocation [None]
  - Procedural complication [None]
  - Musculoskeletal stiffness [None]
  - Post lumbar puncture syndrome [None]
  - Implant site effusion [None]
  - Impaired healing [None]
  - Cerebrospinal fluid leakage [None]
  - Device leakage [None]
  - Incision site pain [None]
  - Pain [None]
